FAERS Safety Report 5080187-0 (Version None)
Quarter: 2006Q3

REPORT INFORMATION
  Report Type: 
  Country: None (occurrence: None)
  Receive Date: 20060810
  Receipt Date: 20060801
  Transmission Date: 20061208
  Serious: No
  Sender: FDA-Public Use
  Company Number: US200606001091

PATIENT
  Age: 43 Year
  Sex: Female
  Weight: 81.6 kg

DRUGS (8)
  1. CYMBALTA [Suspect]
     Indication: BIPOLAR DISORDER
     Dosage: 60 MG
     Dates: start: 20060109, end: 20060516
  2. LEXAPRO /USA/ (ESCITALOPRAM) [Concomitant]
  3. SEROQUEL /UNK/ (QUETIAPINE FUMARATE) [Concomitant]
  4. KLONOPIN [Concomitant]
  5. NEURONTIN [Concomitant]
  6. GEODON [Concomitant]
  7. SYNTHROID [Concomitant]
  8. PEPCID [Concomitant]

REACTIONS (7)
  - ALANINE AMINOTRANSFERASE INCREASED [None]
  - ASPARTATE AMINOTRANSFERASE INCREASED [None]
  - FATIGUE [None]
  - GAMMA-GLUTAMYLTRANSFERASE INCREASED [None]
  - MANIA [None]
  - SEDATION [None]
  - TREATMENT NONCOMPLIANCE [None]
